FAERS Safety Report 9883565 (Version 11)
Quarter: 2016Q1

REPORT INFORMATION
  Report Type: Spontaneous
  Country: CA (occurrence: CA)
  Receive Date: 20140210
  Receipt Date: 20160309
  Transmission Date: 20160526
  Serious: Yes (Hospitalization, Other)
  Sender: FDA-Public Use
  Company Number: CA-ROCHE-1344929

PATIENT
  Age: 55 Year
  Sex: Male

DRUGS (9)
  1. XOLAIR [Suspect]
     Active Substance: OMALIZUMAB
     Route: 058
     Dates: start: 20150527
  2. XOLAIR [Suspect]
     Active Substance: OMALIZUMAB
     Route: 058
     Dates: start: 20150107
  3. FLOVENT [Concomitant]
     Active Substance: FLUTICASONE PROPIONATE
  4. XOLAIR [Suspect]
     Active Substance: OMALIZUMAB
     Route: 058
     Dates: start: 20141112
  5. TAMSULOSIN SANDOZ [Suspect]
     Active Substance: TAMSULOSIN
     Indication: NEPHROLITHIASIS
     Dosage: AT BEDTIME
     Route: 065
     Dates: start: 20130712
  6. XOLAIR [Suspect]
     Active Substance: OMALIZUMAB
     Route: 058
     Dates: start: 20141210
  7. XOLAIR [Suspect]
     Active Substance: OMALIZUMAB
     Indication: ASTHMA
     Route: 058
     Dates: start: 20130115
  8. FINASTERIDE. [Concomitant]
     Active Substance: FINASTERIDE
     Dosage: 5 MG PER DAY AT BEDTIME
     Route: 065
     Dates: start: 20130712
  9. XOLAIR [Suspect]
     Active Substance: OMALIZUMAB
     Route: 058
     Dates: start: 20141015

REACTIONS (16)
  - Seasonal allergy [Unknown]
  - Weight decreased [Unknown]
  - Constipation [Unknown]
  - Hypertension [Not Recovered/Not Resolved]
  - Wound infection [Recovered/Resolved]
  - Intervertebral disc protrusion [Unknown]
  - Prostatic disorder [Unknown]
  - Heart rate increased [Unknown]
  - Cough [Unknown]
  - Fall [Unknown]
  - Renal pain [Unknown]
  - Injection site erythema [Unknown]
  - Fungal skin infection [Unknown]
  - Catheter site haemorrhage [Unknown]
  - Inguinal hernia [Unknown]
  - Dyspnoea [Recovering/Resolving]

NARRATIVE: CASE EVENT DATE: 20130115
